FAERS Safety Report 8255495 (Version 3)
Quarter: 2013Q2

REPORT INFORMATION
  Report Type: Report from Study
  Country: US (occurrence: US)
  Receive Date: 20111118
  Receipt Date: 20130514
  Transmission Date: 20140414
  Serious: Yes (Other)
  Sender: FDA-Public Use
  Company Number: US-ABBOTT-11P-163-0873481-00

PATIENT
  Age: 47 Year
  Sex: Male

DRUGS (5)
  1. HUMIRA [Suspect]
     Indication: CROHN^S DISEASE
     Dates: start: 2009, end: 201011
  2. HUMIRA [Suspect]
     Dates: start: 201109
  3. PREDNISONE [Concomitant]
     Indication: PRODUCT USED FOR UNKNOWN INDICATION
  4. PENTASA [Concomitant]
     Indication: CROHN^S DISEASE
  5. OMEPRAZOLE [Concomitant]
     Indication: PRODUCT USED FOR UNKNOWN INDICATION

REACTIONS (6)
  - Umbilical hernia [Unknown]
  - Intestinal obstruction [Not Recovered/Not Resolved]
  - Hypertension [Unknown]
  - Incision site infection [Unknown]
  - Crohn^s disease [Unknown]
  - Vomiting [Not Recovered/Not Resolved]
